FAERS Safety Report 17362158 (Version 1)
Quarter: 2020Q1

REPORT INFORMATION
  Report Type: Spontaneous
  Country: CA (occurrence: CA)
  Receive Date: 20200203
  Receipt Date: 20200203
  Transmission Date: 20200409
  Serious: Yes (Hospitalization)
  Sender: FDA-Public Use
  Company Number: CA-ROCHE-2532892

PATIENT

DRUGS (15)
  1. HYDROXYCHLOROQUINE [Suspect]
     Active Substance: HYDROXYCHLOROQUINE
     Indication: JUVENILE IDIOPATHIC ARTHRITIS
     Route: 048
  2. GAMMAGARD [Suspect]
     Active Substance: HUMAN IMMUNOGLOBULIN G
     Indication: JUVENILE IDIOPATHIC ARTHRITIS
     Route: 042
  3. INFLIXIMAB [Suspect]
     Active Substance: INFLIXIMAB
     Indication: JUVENILE IDIOPATHIC ARTHRITIS
     Route: 042
  4. METHOTREXATE. [Suspect]
     Active Substance: METHOTREXATE
     Indication: JUVENILE IDIOPATHIC ARTHRITIS
     Route: 065
  5. ANAKINRA [Suspect]
     Active Substance: ANAKINRA
     Indication: JUVENILE IDIOPATHIC ARTHRITIS
     Route: 058
  6. APO-NAPROXEN [Suspect]
     Active Substance: NAPROXEN
     Indication: JUVENILE IDIOPATHIC ARTHRITIS
     Route: 065
  7. APO-PREDNISONE [Suspect]
     Active Substance: PREDNISONE
     Route: 048
  8. APO-PREDNISONE [Suspect]
     Active Substance: PREDNISONE
     Indication: JUVENILE IDIOPATHIC ARTHRITIS
     Route: 048
  9. ACTEMRA [Suspect]
     Active Substance: TOCILIZUMAB
     Indication: JUVENILE IDIOPATHIC ARTHRITIS
     Route: 042
  10. ADALIMUMAB [Suspect]
     Active Substance: ADALIMUMAB
     Indication: JUVENILE IDIOPATHIC ARTHRITIS
     Route: 058
  11. ORENCIA [Suspect]
     Active Substance: ABATACEPT
     Indication: JUVENILE IDIOPATHIC ARTHRITIS
     Route: 042
  12. SULFASALAZINE. [Suspect]
     Active Substance: SULFASALAZINE
     Indication: JUVENILE IDIOPATHIC ARTHRITIS
     Route: 048
  13. ENBREL [Suspect]
     Active Substance: ETANERCEPT
     Indication: JUVENILE IDIOPATHIC ARTHRITIS
     Route: 058
  14. ENBREL [Suspect]
     Active Substance: ETANERCEPT
     Route: 058
  15. TRIAMCINOLONE ACETONIDE. [Suspect]
     Active Substance: TRIAMCINOLONE ACETONIDE
     Indication: JUVENILE IDIOPATHIC ARTHRITIS
     Route: 065

REACTIONS (21)
  - Human antichimeric antibody positive [Unknown]
  - Psoriasis [Unknown]
  - Arthritis [Unknown]
  - Condition aggravated [Unknown]
  - Drug intolerance [Unknown]
  - Bone density decreased [Unknown]
  - Diarrhoea [Unknown]
  - Obesity [Unknown]
  - Adrenal insufficiency [Unknown]
  - Body height below normal [Unknown]
  - Antibody test positive [Unknown]
  - Vomiting [Unknown]
  - C-reactive protein increased [Unknown]
  - Juvenile idiopathic arthritis [Unknown]
  - Loss of personal independence in daily activities [Unknown]
  - Red blood cell sedimentation rate increased [Unknown]
  - Septic shock [Unknown]
  - Drug ineffective [Unknown]
  - Polyarthritis [Unknown]
  - Synovitis [Unknown]
  - Wheelchair user [Unknown]
